FAERS Safety Report 25691661 (Version 1)
Quarter: 2025Q3

REPORT INFORMATION
  Report Type: Spontaneous
  Country: US (occurrence: US)
  Receive Date: 20250818
  Receipt Date: 20250818
  Transmission Date: 20251021
  Serious: No
  Sender: JOHNSON AND JOHNSON
  Company Number: US-JNJFOC-20250816221

PATIENT
  Age: 8 Decade
  Sex: Male

DRUGS (1)
  1. IMAAVY [Suspect]
     Active Substance: NIPOCALIMAB-AAHU
     Indication: Product used for unknown indication
     Route: 065
     Dates: start: 20250806

REACTIONS (5)
  - Muscular weakness [Unknown]
  - Condition aggravated [Unknown]
  - Loss of personal independence in daily activities [Unknown]
  - Asthenia [Unknown]
  - Weight decreased [Unknown]
